FAERS Safety Report 9822923 (Version 3)
Quarter: 2015Q3

REPORT INFORMATION
  Report Type: Spontaneous
  Country: US (occurrence: US)
  Receive Date: 20140116
  Receipt Date: 20150806
  Transmission Date: 20151125
  Serious: No
  Sender: FDA-Public Use
  Company Number: US-GILEAD-2010-0032978

PATIENT
  Age: 68 Year
  Sex: Female
  Weight: 77.11 kg

DRUGS (16)
  1. TORSEMIDE. [Concomitant]
     Active Substance: TORSEMIDE
  2. MINOCIN [Concomitant]
     Active Substance: MINOCYCLINE HYDROCHLORIDE
  3. LETAIRIS [Suspect]
     Active Substance: AMBRISENTAN
     Indication: PULMONARY HYPERTENSION
     Route: 048
     Dates: start: 20100716, end: 20100927
  4. COENZYME Q10 [Concomitant]
     Active Substance: UBIDECARENONE
  5. NEXIUM [Concomitant]
     Active Substance: ESOMEPRAZOLE MAGNESIUM
  6. VITAMIN B [Concomitant]
     Active Substance: VITAMIN B
  7. POTASSIUM CHLORIDE. [Concomitant]
     Active Substance: POTASSIUM CHLORIDE
  8. OMEGA 3 [Concomitant]
     Active Substance: OMEGA-3 FATTY ACIDS
  9. SINGULAIR [Concomitant]
     Active Substance: MONTELUKAST SODIUM
  10. TYLENOL [Concomitant]
     Active Substance: ACETAMINOPHEN
  11. ADCIRCA [Concomitant]
     Active Substance: TADALAFIL
  12. TUMS [Concomitant]
     Active Substance: CALCIUM CARBONATE
  13. XALATAN [Concomitant]
     Active Substance: LATANOPROST
  14. BONIVA [Concomitant]
     Active Substance: IBANDRONATE SODIUM
  15. LIPITOR [Concomitant]
     Active Substance: ATORVASTATIN CALCIUM
  16. LEVOTHYROXINE. [Concomitant]
     Active Substance: LEVOTHYROXINE

REACTIONS (2)
  - Pruritus [Recovered/Resolved]
  - Peripheral swelling [Recovered/Resolved]
